FAERS Safety Report 25112288 (Version 1)
Quarter: 2025Q1

REPORT INFORMATION
  Report Type: Spontaneous
  Country: US (occurrence: US)
  Receive Date: 20250324
  Receipt Date: 20250324
  Transmission Date: 20250409
  Serious: Yes (Other)
  Sender: AMGEN
  Company Number: US-AMGEN-USASP2025055098

PATIENT
  Age: 57 Year
  Sex: Male
  Weight: 101 kg

DRUGS (13)
  1. TEPEZZA [Suspect]
     Active Substance: TEPROTUMUMAB-TRBW
     Indication: Toxic goitre
     Route: 040
     Dates: start: 20221227
  2. TEPEZZA [Suspect]
     Active Substance: TEPROTUMUMAB-TRBW
     Dosage: 1968 MILLIGRAM, Q3WK, (SECOND INFUSION)
     Route: 040
     Dates: start: 20230117
  3. TEPEZZA [Suspect]
     Active Substance: TEPROTUMUMAB-TRBW
     Dosage: 1914 MILLIGRAM, Q3WK, (THIRD INFUSION)
     Route: 040
     Dates: start: 20230208
  4. TEPEZZA [Suspect]
     Active Substance: TEPROTUMUMAB-TRBW
     Dosage: 1872 MILLIGRAM, Q3WK, (FOURTH INFUSION)
     Route: 040
     Dates: start: 20230303
  5. TEPEZZA [Suspect]
     Active Substance: TEPROTUMUMAB-TRBW
     Dosage: 1914 MILLIGRAM, Q3WK, (FIFTH INFUSION)
     Route: 040
     Dates: start: 20230323
  6. TEPEZZA [Suspect]
     Active Substance: TEPROTUMUMAB-TRBW
     Dosage: 1914 MILLIGRAM, Q3WK, (SIXTH INFUSION)
     Route: 040
     Dates: start: 20230413
  7. TEPEZZA [Suspect]
     Active Substance: TEPROTUMUMAB-TRBW
     Dosage: 1914 MILLIGRAM, Q3WK, (SEVENTH INFUSION)
     Route: 040
     Dates: start: 20230504
  8. TEPEZZA [Suspect]
     Active Substance: TEPROTUMUMAB-TRBW
     Dosage: 1882 MILLIGRAM, Q3WK
     Route: 040
     Dates: start: 20230531
  9. PREDNISONE [Suspect]
     Active Substance: PREDNISONE
     Indication: Sinusitis
     Route: 065
  10. ELIQUIS [Concomitant]
     Active Substance: APIXABAN
     Dosage: 5 MILLIGRAM, BID
     Route: 048
  11. SYNTHROID [Concomitant]
     Active Substance: LEVOTHYROXINE SODIUM
     Route: 065
  12. CARDIZEM [Concomitant]
     Active Substance: DILTIAZEM HYDROCHLORIDE
     Route: 065
  13. SODIUM CHLORIDE [Concomitant]
     Active Substance: SODIUM CHLORIDE
     Route: 065

REACTIONS (12)
  - Atrial fibrillation [Unknown]
  - Basal cell carcinoma [Unknown]
  - Thyroid stimulating immunoglobulin increased [Unknown]
  - Haemorrhage [Unknown]
  - Temperature intolerance [Unknown]
  - Constipation [Unknown]
  - Musculoskeletal discomfort [Unknown]
  - Chills [Unknown]
  - Rash [Unknown]
  - Nausea [Unknown]
  - Diarrhoea [Recovering/Resolving]
  - Headache [Unknown]

NARRATIVE: CASE EVENT DATE: 20220901
